FAERS Safety Report 7966282-4 (Version None)
Quarter: 2011Q4

REPORT INFORMATION
  Report Type: 
  Country: None (occurrence: None)
  Receive Date: 20111208
  Receipt Date: 20111201
  Transmission Date: 20120403
  Serious: Yes (Death, Other)
  Sender: FDA-Public Use
  Company Number: JP-CEPHALON-2011000409

PATIENT
  Sex: Female
  Weight: 46 kg

DRUGS (17)
  1. SULFAMETHOXAZOLE AND TRIMETHOPRIM [Concomitant]
     Dates: end: 20110113
  2. GRANISETRON HCL [Concomitant]
     Dates: start: 20101216, end: 20101217
  3. BENDAMUSTINE HCL [Suspect]
     Indication: MANTLE CELL LYMPHOMA
     Route: 041
     Dates: start: 20101216, end: 20101217
  4. ACYCLOVIR [Concomitant]
     Dates: end: 20110113
  5. ISOTONIC SOLUTIONS [Concomitant]
     Dates: start: 20101216, end: 20101222
  6. SENNOSIDE [Concomitant]
     Dates: start: 20101223, end: 20110111
  7. CHLORPHENIRAMINE MALEATE [Concomitant]
     Dates: start: 20101220, end: 20101221
  8. DEXAMETHASONE [Concomitant]
     Dates: start: 20101116, end: 20110113
  9. LAFUTIDINE [Concomitant]
     Dates: end: 20110113
  10. MAGNESIUM OXIDE [Concomitant]
     Dates: end: 20110113
  11. FUROSEMIDE [Concomitant]
     Dates: end: 20101227
  12. PREGABALIN [Concomitant]
     Dates: end: 20110112
  13. FLUCONAZOLE [Concomitant]
     Dates: end: 20110113
  14. ALLOPURINOL [Concomitant]
     Dates: end: 20110112
  15. URSODIOL [Concomitant]
     Dates: end: 20110113
  16. DEXAMEHTASONE SODIUM PHOSPHATE [Concomitant]
     Dates: start: 20101216, end: 20101217
  17. SODIUM BICARBONATE [Concomitant]
     Dates: start: 20101216, end: 20101222

REACTIONS (16)
  - HAEMOGLOBIN DECREASED [None]
  - PNEUMONITIS [None]
  - WHITE BLOOD CELL COUNT DECREASED [None]
  - BLOOD SODIUM DECREASED [None]
  - BLOOD POTASSIUM DECREASED [None]
  - RED BLOOD CELL COUNT DECREASED [None]
  - DISSEMINATED INTRAVASCULAR COAGULATION [None]
  - HYPOALBUMINAEMIA [None]
  - ALANINE AMINOTRANSFERASE INCREASED [None]
  - DECREASED APPETITE [None]
  - ASPARTATE AMINOTRANSFERASE INCREASED [None]
  - LYMPHOCYTE COUNT DECREASED [None]
  - HAEMATOCRIT DECREASED [None]
  - PLATELET COUNT DECREASED [None]
  - NEUTROPHIL COUNT DECREASED [None]
  - MANTLE CELL LYMPHOMA [None]
